FAERS Safety Report 4700980-0 (Version None)
Quarter: 2005Q2

REPORT INFORMATION
  Report Type: 
  Country: None (occurrence: None)
  Receive Date: 20050624
  Receipt Date: 20050620
  Transmission Date: 20051028
  Serious: Yes (Hospitalization)
  Sender: FDA-Public Use
  Company Number: US-2005-002535

PATIENT
  Age: 36 Year
  Sex: Female

DRUGS (2)
  1. BETASERON [Suspect]
     Indication: MULTIPLE SCLEROSIS
     Dosage: SUBCUTANEOUS; 8 MIU, EVERY 2D, SUBCUTANEOUS
     Route: 058
     Dates: start: 19990513, end: 20011209
  2. BETASERON [Suspect]
     Indication: MULTIPLE SCLEROSIS
     Dosage: SUBCUTANEOUS; 8 MIU, EVERY 2D, SUBCUTANEOUS
     Route: 058
     Dates: start: 20040921

REACTIONS (3)
  - DEHYDRATION [None]
  - INFLUENZA [None]
  - ORAL INTAKE REDUCED [None]
